FAERS Safety Report 17163068 (Version 1)
Quarter: 2019Q4

REPORT INFORMATION
  Report Type: Spontaneous
  Country: US (occurrence: US)
  Receive Date: 20191216
  Receipt Date: 20191216
  Transmission Date: 20200122
  Serious: Yes (Hospitalization)
  Sender: FDA-Public Use
  Company Number: None

PATIENT
  Age: 75 Year
  Sex: Male
  Weight: 124.1 kg

DRUGS (11)
  1. CARVEDILOL 12.5MG BID [Concomitant]
  2. GABAPENTIN 300MG TID [Concomitant]
  3. APIXABAN [Suspect]
     Active Substance: APIXABAN
     Indication: ATRIAL FIBRILLATION
     Route: 048
     Dates: start: 20131101
  4. ATORVASTATIN 40MG DAILY [Concomitant]
  5. ASPIRIN. [Suspect]
     Active Substance: ASPIRIN
     Route: 048
     Dates: start: 20131028
  6. HYDROCHLOROTHIAZIDE 25MG DAILY [Concomitant]
  7. PIOGLITAZONE 15MG DAILY [Concomitant]
  8. RANITIDINE 300MG DAILY [Concomitant]
  9. AMIODARONE 200MG DAILY [Concomitant]
  10. LOSARTAN 50MG DAILY [Concomitant]
  11. ALLOPURINOL 100MG DAILY [Concomitant]

REACTIONS (6)
  - Injury [None]
  - Fall [None]
  - Arthralgia [None]
  - Haematoma infection [None]
  - Haematoma [None]
  - Oedema peripheral [None]

NARRATIVE: CASE EVENT DATE: 20160604
